FAERS Safety Report 10520267 (Version 2)
Quarter: 2015Q1

REPORT INFORMATION
  Report Type: Spontaneous
  Country: US (occurrence: US)
  Receive Date: 20141015
  Receipt Date: 20150310
  Transmission Date: 20150720
  Serious: No
  Sender: FDA-Public Use
  Company Number: US-GLAXOSMITHKLINE-US2014GSK003851

PATIENT
  Age: 69 Year
  Sex: Female
  Weight: 96.15 kg

DRUGS (21)
  1. ADVAIR DISKUS [Suspect]
     Active Substance: FLUTICASONE PROPIONATE\SALMETEROL XINAFOATE
     Indication: ASTHMA
     Dosage: 1 DF, BID
     Dates: start: 2010
  2. ALBUTEROL. [Concomitant]
     Active Substance: ALBUTEROL
  3. FERROUS SULFATE [Concomitant]
     Active Substance: FERROUS SULFATE\FERROUS SULFATE, DRIED
  4. NITROGLYCERIN. [Concomitant]
     Active Substance: NITROGLYCERIN
  5. PRILOSEC [Concomitant]
     Active Substance: OMEPRAZOLE MAGNESIUM
  6. COREG [Concomitant]
     Active Substance: CARVEDILOL
  7. ZYRTEC [Concomitant]
     Active Substance: CETIRIZINE HYDROCHLORIDE
  8. METHOCARBAMOL. [Concomitant]
     Active Substance: METHOCARBAMOL
  9. COUMADIN [Concomitant]
     Active Substance: WARFARIN SODIUM
  10. FUROSEMIDE. [Concomitant]
     Active Substance: FUROSEMIDE
  11. LANOXIN [Concomitant]
     Active Substance: DIGOXIN
  12. ALDACTONE [Concomitant]
     Active Substance: SPIRONOLACTONE
  13. ADVAIR DISKUS [Suspect]
     Active Substance: FLUTICASONE PROPIONATE\SALMETEROL XINAFOATE
     Dosage: 1 DF, QD
  14. TYLENOL [Concomitant]
     Active Substance: ACETAMINOPHEN
  15. CLINDAMYCIN HYDROCHLORIDE. [Concomitant]
     Active Substance: CLINDAMYCIN HYDROCHLORIDE
  16. LORAZEPAM. [Concomitant]
     Active Substance: LORAZEPAM
  17. NYSTOP [Concomitant]
     Active Substance: NYSTATIN
  18. POTASSIUM [Concomitant]
     Active Substance: POTASSIUM
  19. VITAMIN D [Concomitant]
     Active Substance: CHOLECALCIFEROL
  20. ZESTRIL [Concomitant]
     Active Substance: LISINOPRIL
  21. PRAVACHOL [Concomitant]
     Active Substance: PRAVASTATIN SODIUM

REACTIONS (3)
  - Breast disorder [Recovered/Resolved]
  - Precancerous cells present [Recovered/Resolved]
  - Dysphonia [Recovered/Resolved]

NARRATIVE: CASE EVENT DATE: 201210
